FAERS Safety Report 13795354 (Version 1)
Quarter: 2017Q3

REPORT INFORMATION
  Report Type: Spontaneous
  Country: IT (occurrence: IT)
  Receive Date: 20170726
  Receipt Date: 20170726
  Transmission Date: 20171127
  Serious: Yes (Other)
  Sender: FDA-Public Use
  Company Number: IT-TAKEDA-2017TUS015670

PATIENT
  Age: 25 Year
  Sex: Male

DRUGS (2)
  1. BRINTELLIX [Suspect]
     Active Substance: VORTIOXETINE HYDROBROMIDE
     Indication: MAJOR DEPRESSION
     Dosage: UNK
     Route: 048
     Dates: start: 20170624, end: 20170624
  2. XANAX [Suspect]
     Active Substance: ALPRAZOLAM
     Indication: ANXIETY
     Dosage: OVERDOSE: 14 DOSAGE FORMS
     Route: 048
     Dates: start: 20170624, end: 20170624

REACTIONS (4)
  - Intentional self-injury [Unknown]
  - Speech disorder [Unknown]
  - Overdose [Unknown]
  - Drug use disorder [Unknown]

NARRATIVE: CASE EVENT DATE: 20170624
